FAERS Safety Report 16514831 (Version 1)
Quarter: 2019Q3

REPORT INFORMATION
  Report Type: Spontaneous
  Country: US (occurrence: US)
  Receive Date: 20190702
  Receipt Date: 20190702
  Transmission Date: 20191004
  Serious: Yes (Other)
  Sender: FDA-Public Use
  Company Number: US-PFIZER INC-2019231915

PATIENT
  Age: 48 Year
  Sex: Male

DRUGS (2)
  1. GABAPENTIN. [Suspect]
     Active Substance: GABAPENTIN
     Dosage: 900 MG, 3X/DAY (TID: THREE TIMES A DAY)
     Route: 048
     Dates: start: 2018, end: 2018
  2. GABAPENTIN. [Suspect]
     Active Substance: GABAPENTIN
     Indication: BRACHIAL PLEXUS INJURY
     Dosage: 600 MG, 4X/DAY (QID: FOUR TIMES A DAY)
     Route: 048
     Dates: start: 2018, end: 2018

REACTIONS (5)
  - Off label use [Unknown]
  - Depression [Recovering/Resolving]
  - Product use in unapproved indication [Unknown]
  - Suicidal ideation [Recovering/Resolving]
  - Dizziness [Recovering/Resolving]
